FAERS Safety Report 13037689 (Version 1)
Quarter: 2016Q4

REPORT INFORMATION
  Report Type: Spontaneous
  Country: US (occurrence: US)
  Receive Date: 20161217
  Receipt Date: 20161217
  Transmission Date: 20170207
  Serious: No
  Sender: FDA-Public Use
  Company Number: US-TEVA-716837USA

PATIENT
  Sex: Female

DRUGS (1)
  1. CAMRESELO [Suspect]
     Active Substance: ETHINYL ESTRADIOL\LEVONORGESTREL
     Indication: CONTRACEPTION
     Dosage: 0.1 MG / 0.02 MG / 0.01 MG

REACTIONS (3)
  - Dysmenorrhoea [Unknown]
  - Menstruation irregular [Unknown]
  - Breast tenderness [Unknown]

NARRATIVE: CASE EVENT DATE: 201611
